FAERS Safety Report 10984795 (Version 2)
Quarter: 2015Q2

REPORT INFORMATION
  Report Type: Spontaneous
  Country: US (occurrence: US)
  Receive Date: 20150403
  Receipt Date: 20150525
  Transmission Date: 20150821
  Serious: No
  Sender: FDA-Public Use
  Company Number: US-JNJFOC-20140317587

PATIENT
  Sex: Male
  Weight: 64.41 kg

DRUGS (2)
  1. IMODIUM A-D [Suspect]
     Active Substance: LOPERAMIDE HYDROCHLORIDE
     Route: 048
  2. IMODIUM A-D [Suspect]
     Active Substance: LOPERAMIDE HYDROCHLORIDE
     Indication: DIARRHOEA
     Dosage: 2 DOSE AFTER FIRST STOOL AND ONE AFTER NEXT EVERY 24 HOURS FOR 4 DAYS
     Route: 048
     Dates: start: 20140226

REACTIONS (2)
  - Expired product administered [Unknown]
  - Weight decreased [Unknown]
